FAERS Safety Report 6012712-7 (Version None)
Quarter: 2008Q4

REPORT INFORMATION
  Report Type: 
  Country: None (occurrence: None)
  Receive Date: 20081217
  Receipt Date: 20081203
  Transmission Date: 20090506
  Serious: Yes (Other)
  Sender: FDA-Public Use
  Company Number: 1000001769

PATIENT
  Age: 80 Year
  Sex: Female

DRUGS (1)
  1. ESCITALOPRAM ORAL SOLUTION (ESCITALOPRAM OXALATE) [Suspect]
     Indication: DEPRESSION
     Dosage: 5 DROPS DAILY (20 MILLIGRAM/MILLILITERS), ORAL
     Route: 048

REACTIONS (1)
  - PLEURAL EFFUSION [None]
